FAERS Safety Report 9659654 (Version 1)
Quarter: 2013Q4

REPORT INFORMATION
  Report Type: Spontaneous
  Country: US (occurrence: US)
  Receive Date: 20131031
  Receipt Date: 20131031
  Transmission Date: 20140711
  Serious: No
  Sender: FDA-Public Use
  Company Number: US-BAYER-2013-132673

PATIENT
  Sex: Female

DRUGS (3)
  1. NATAZIA [Suspect]
  2. TOPAMAX [Interacting]
     Indication: DEPRESSION
     Dosage: 100 MG, UNK
  3. WELLBUTRIN [Interacting]
     Dosage: 300 MG, UNK

REACTIONS (2)
  - Weight decreased [None]
  - Labelled drug-drug interaction medication error [None]
